FAERS Safety Report 21660856 (Version 1)
Quarter: 2022Q4

REPORT INFORMATION
  Report Type: Report from Study
  Country: US (occurrence: US)
  Receive Date: 20221130
  Receipt Date: 20221130
  Transmission Date: 20230113
  Serious: No
  Sender: FDA-Public Use
  Company Number: US-ABBVIE-4180211

PATIENT
  Sex: Female

DRUGS (1)
  1. RINVOQ [Suspect]
     Active Substance: UPADACITINIB
     Indication: Rheumatoid arthritis
     Dosage: FORM STRENGTH: 15 MILLIGRAM?EXTENDED RELEASE TABLET
     Route: 048
     Dates: start: 20220929, end: 20221021

REACTIONS (4)
  - Abdominal pain upper [Recovering/Resolving]
  - Urticaria [Unknown]
  - Rash [Unknown]
  - Headache [Recovering/Resolving]
